FAERS Safety Report 8836608 (Version 1)
Quarter: 2012Q4

REPORT INFORMATION
  Report Type: Spontaneous
  Country: JP (occurrence: None)
  Receive Date: 20121010
  Receipt Date: 20121010
  Transmission Date: 20130627
  Serious: Yes (Other)
  Sender: FDA-Public Use
  Company Number: DKLU1084994

PATIENT
  Age: 13 Year
  Sex: Male

DRUGS (8)
  1. ONFI [Suspect]
     Indication: EPILEPSY
     Route: 048
  2. EXCEGRAN [Suspect]
     Indication: EPILEPSY
     Route: 048
  3. ALEVIATIN (PHENYTOIN) [Concomitant]
  4. PHENOBARBITAL (PHENOBARBITAL) [Concomitant]
  5. ANNACA (CAFFEINE) [Concomitant]
  6. MUCODYNE (CARBOCISTEINE} [Concomitant]
  7. BISOLVON {BRCMHEXINE HYDROCHLORIDE) [Concomitant]
  8. KEPPRA (LEVETIRACETAM) [Concomitant]

REACTIONS (2)
  - Nephrolithiasis [None]
  - Crystal urine present [None]
